FAERS Safety Report 16825971 (Version 1)
Quarter: 2019Q3

REPORT INFORMATION
  Report Type: Spontaneous
  Country: GR (occurrence: GR)
  Receive Date: 20190919
  Receipt Date: 20190919
  Transmission Date: 20191005
  Serious: Yes (Other)
  Sender: FDA-Public Use
  Company Number: GR-AMGEN-GRCSP2019152807

PATIENT
  Age: 67 Year
  Sex: Male

DRUGS (3)
  1. NEULASTA [Suspect]
     Active Substance: PEGFILGRASTIM
     Indication: NEUTROPENIA
     Dosage: UNK
     Route: 065
  2. KEPPRA [Concomitant]
     Active Substance: LEVETIRACETAM
     Dosage: 1000 MILLIGRAM (IN THE MORNING)
  3. FRISIUM [Concomitant]
     Active Substance: CLOBAZAM
     Dosage: 5 MILLIGRAM (3X)

REACTIONS (1)
  - Epilepsy [Not Recovered/Not Resolved]
